FAERS Safety Report 15096656 (Version 1)
Quarter: 2018Q3

REPORT INFORMATION
  Report Type: Spontaneous
  Country: AU (occurrence: AU)
  Receive Date: 20180702
  Receipt Date: 20180702
  Transmission Date: 20181010
  Serious: Yes (Other)
  Sender: FDA-Public Use
  Company Number: AU-CELGENEUS-AUS-20180607853

PATIENT
  Sex: Male

DRUGS (2)
  1. THALIDOMIDE [Suspect]
     Active Substance: THALIDOMIDE
     Indication: CONGENITAL DYSKERATOSIS
     Dosage: (SEQUENTIALLY DOSE?ESCALATED)
     Route: 048
  2. THALIDOMIDE [Suspect]
     Active Substance: THALIDOMIDE
     Indication: OFF LABEL USE
     Dosage: 200 MILLIGRAM
     Route: 048

REACTIONS (7)
  - Fall [Unknown]
  - Abnormal behaviour [Unknown]
  - Gastrointestinal haemorrhage [Unknown]
  - Lethargy [Unknown]
  - Wrist fracture [Unknown]
  - Serum serotonin decreased [Unknown]
  - Depression [Unknown]
